FAERS Safety Report 6642501-1 (Version None)
Quarter: 2010Q1

REPORT INFORMATION
  Report Type: 
  Country: None (occurrence: None)
  Receive Date: 20100316
  Receipt Date: 20100302
  Transmission Date: 20100710
  Serious: Yes (Other)
  Sender: FDA-Public Use
  Company Number: 1-21868251

PATIENT
  Age: 42 Year
  Sex: Female

DRUGS (5)
  1. FENTANYL-75 [Suspect]
     Indication: PAIN
     Dosage: 75 MCG/HR X 1 DOSE, TRANSDERMAL
     Route: 062
     Dates: start: 20100222, end: 20100223
  2. MORPHINE [Concomitant]
  3. GABAPENTIN [Concomitant]
  4. OXYNORM (OXYCODONE) [Concomitant]
  5. WARFARIN SODIUM [Concomitant]

REACTIONS (7)
  - BALANCE DISORDER [None]
  - DRUG PRESCRIBING ERROR [None]
  - INCORRECT DOSE ADMINISTERED [None]
  - MALAISE [None]
  - NAUSEA [None]
  - RESPIRATORY DEPRESSION [None]
  - VOMITING [None]
